FAERS Safety Report 8138684-7 (Version None)
Quarter: 2012Q1

REPORT INFORMATION
  Report Type: 
  Country: None (occurrence: None)
  Receive Date: 20120215
  Receipt Date: 20120210
  Transmission Date: 20120608
  Serious: Yes (Hospitalization)
  Sender: FDA-Public Use
  Company Number: GB-ELI_LILLY_AND_COMPANY-GB201202002962

PATIENT
  Age: 68 Year
  Sex: Male
  Weight: 107 kg

DRUGS (4)
  1. METFORMIN HCL [Concomitant]
  2. GLICLAZIDE [Concomitant]
     Dosage: 80 MG, QD
  3. EXENATIDE [Suspect]
     Dosage: 5 UG, UNK
     Route: 058
     Dates: start: 20110926, end: 20111026
  4. EXENATIDE [Suspect]
     Dosage: 10 UG, UNK
     Route: 058
     Dates: start: 20111026, end: 20120119

REACTIONS (2)
  - JAUNDICE CHOLESTATIC [None]
  - LIVER FUNCTION TEST ABNORMAL [None]
